FAERS Safety Report 13421783 (Version 1)
Quarter: 2017Q2

REPORT INFORMATION
  Report Type: Spontaneous
  Country: US (occurrence: US)
  Receive Date: 20170410
  Receipt Date: 20170410
  Transmission Date: 20170830
  Serious: No
  Sender: FDA-Public Use
  Company Number: US-009507513-1703USA009295

PATIENT
  Age: 23 Year
  Sex: Female
  Weight: 84.35 kg

DRUGS (1)
  1. NUVARING [Suspect]
     Active Substance: ETHINYL ESTRADIOL\ETONOGESTREL
     Indication: CONTRACEPTION
     Dosage: 1 DF, QM
     Route: 067

REACTIONS (2)
  - Vaginal haemorrhage [Unknown]
  - Device expulsion [Unknown]

NARRATIVE: CASE EVENT DATE: 201703
